FAERS Safety Report 8182162-6 (Version None)
Quarter: 2012Q1

REPORT INFORMATION
  Report Type: 
  Country: None (occurrence: None)
  Receive Date: 20120302
  Receipt Date: 20120224
  Transmission Date: 20120608
  Serious: Yes (Death, Hospitalization)
  Sender: FDA-Public Use
  Company Number: JP-ROCHE-1044210

PATIENT
  Sex: Female

DRUGS (28)
  1. CLINDAMYCIN [Concomitant]
     Route: 042
     Dates: start: 20040808, end: 20040818
  2. MYCOPHENOLATE MOFETIL (CELLCEPT) [Suspect]
     Route: 048
     Dates: start: 20040827, end: 20040827
  3. SOLU-MEDROL [Concomitant]
     Indication: PROPHYLAXIS AGAINST TRANSPLANT REJECTION
     Dosage: 20-1000MG
     Route: 042
     Dates: start: 20040714, end: 20040719
  4. SIMULECT [Concomitant]
     Indication: LIVER TRANSPLANT REJECTION
     Route: 042
     Dates: start: 20040801
  5. OMEPRAZOLE [Concomitant]
     Indication: PROPHYLAXIS
     Route: 042
     Dates: start: 20040714, end: 20040721
  6. MYCOPHENOLATE MOFETIL (CELLCEPT) [Suspect]
     Route: 048
     Dates: start: 20040803, end: 20040817
  7. MYCOPHENOLATE MOFETIL (CELLCEPT) [Suspect]
     Route: 048
     Dates: start: 20040818, end: 20040826
  8. PREDNISOLONE [Concomitant]
     Indication: PROPHYLAXIS AGAINST TRANSPLANT REJECTION
     Route: 048
     Dates: start: 20040720, end: 20040918
  9. GANCICLOVIR [Concomitant]
     Indication: PROPHYLAXIS
     Dosage: 145-280MG/DAY
     Route: 042
     Dates: start: 20040714, end: 20040804
  10. URSO 250 [Concomitant]
     Indication: PROPHYLAXIS
     Route: 048
     Dates: start: 20040625, end: 20040918
  11. RABEPRAZOLE SODIUM [Concomitant]
     Indication: PROPHYLAXIS
     Route: 048
     Dates: start: 20040722, end: 20040802
  12. CEFOTIAM HYDROCHLORIDE [Concomitant]
     Indication: PROPHYLAXIS
     Route: 042
     Dates: start: 20040802, end: 20040804
  13. IMIPENEM AND CILASTATIN SODIUM [Concomitant]
     Indication: PROPHYLAXIS
     Route: 042
     Dates: start: 20040808, end: 20040810
  14. MYCOPHENOLATE MOFETIL (CELLCEPT) [Suspect]
     Route: 048
     Dates: start: 20040906, end: 20040901
  15. FUNGUARD [Concomitant]
     Indication: PROPHYLAXIS
     Route: 042
     Dates: start: 20040714, end: 20040827
  16. MYCOPHENOLATE MOFETIL (CELLCEPT) [Suspect]
     Route: 048
     Dates: start: 20040701, end: 20040802
  17. TACROLIMUS [Suspect]
     Indication: PROPHYLAXIS AGAINST TRANSPLANT REJECTION
     Dosage: 0.5-6.5MG/DAY
     Route: 048
     Dates: start: 20040715, end: 20040729
  18. CIPROFLOXACIN [Concomitant]
     Indication: PROPHYLAXIS
     Dosage: DOSAGE IS UNCERTAIN.
     Route: 042
     Dates: start: 20040727, end: 20040804
  19. FOY [Concomitant]
     Indication: PROPHYLAXIS
     Route: 042
     Dates: start: 20040809, end: 20040918
  20. MYCOPHENOLATE MOFETIL (CELLCEPT) [Suspect]
     Indication: PROPHYLAXIS AGAINST TRANSPLANT REJECTION
     Route: 048
     Dates: start: 20040701, end: 20040701
  21. LAMIVUDINE [Concomitant]
     Indication: PROPHYLAXIS
     Route: 048
     Dates: start: 20040716, end: 20040729
  22. CLINDAMYCIN [Concomitant]
     Indication: PROPHYLAXIS
     Route: 042
     Dates: start: 20040730, end: 20040804
  23. MYCOPHENOLATE MOFETIL (CELLCEPT) [Suspect]
     Route: 048
     Dates: start: 20040905, end: 20040905
  24. MYCOPHENOLATE MOFETIL (CELLCEPT) [Suspect]
     Route: 048
     Dates: start: 20040909, end: 20040918
  25. NEORAL [Concomitant]
     Indication: PROPHYLAXIS AGAINST TRANSPLANT REJECTION
     Dosage: 25-150MG/DAY
     Route: 048
     Dates: start: 20040803, end: 20040905
  26. LASIX [Concomitant]
     Indication: PROPHYLAXIS
     Route: 048
     Dates: start: 20040722, end: 20040918
  27. AZACTAM [Concomitant]
     Indication: PROPHYLAXIS
     Route: 042
     Dates: start: 20040730, end: 20040801
  28. PIPERACILLIN SODIUM [Concomitant]
     Indication: PROPHYLAXIS
     Route: 042
     Dates: start: 20040811, end: 20040817

REACTIONS (5)
  - HEPATIC FAILURE [None]
  - INTRA-ABDOMINAL HAEMORRHAGE [None]
  - MULTI-ORGAN FAILURE [None]
  - HAEMOTHORAX [None]
  - RESPIRATORY FAILURE [None]
